FAERS Safety Report 7563187-8 (Version None)
Quarter: 2011Q2

REPORT INFORMATION
  Report Type: 
  Country: None (occurrence: None)
  Receive Date: 20110622
  Receipt Date: 20110620
  Transmission Date: 20111010
  Serious: Yes (Death)
  Sender: FDA-Public Use
  Company Number: GB-TEVA-287134ISR

PATIENT
  Age: 39 Year
  Sex: Male

DRUGS (2)
  1. MORPHINE [Suspect]
  2. CLOZAPINE [Suspect]
     Indication: SCHIZOPHRENIA
     Route: 048
     Dates: start: 20010802

REACTIONS (4)
  - ADENOCARCINOMA [None]
  - CIRCULATORY COLLAPSE [None]
  - METASTASES TO CENTRAL NERVOUS SYSTEM [None]
  - CONVULSION [None]
